FAERS Safety Report 21028185 (Version 1)
Quarter: 2022Q2

REPORT INFORMATION
  Report Type: Spontaneous
  Country: None (occurrence: FR)
  Receive Date: 20220630
  Receipt Date: 20220630
  Transmission Date: 20220720
  Serious: Yes (Other)
  Sender: FDA-Public Use
  Company Number: FR-B.Braun Medical Inc.-2130439

PATIENT
  Age: 13 Year

DRUGS (2)
  1. ACETAMINOPHEN [Suspect]
     Active Substance: ACETAMINOPHEN
  2. PHLOROGLUCINOL [Suspect]
     Active Substance: PHLOROGLUCINOL

REACTIONS (2)
  - Product use issue [Unknown]
  - Product use in unapproved indication [Unknown]
